FAERS Safety Report 4610538-X (Version None)
Quarter: 2005Q2

REPORT INFORMATION
  Report Type: 
  Country: None (occurrence: None)
  Receive Date: 20050301
  Receipt Date: 20041122
  Transmission Date: 20051028
  Serious: No
  Sender: FDA-Public Use
  Company Number: WAES 0411USA04220

PATIENT
  Age: 72 Year
  Sex: Female

DRUGS (3)
  1. ZETIA [Suspect]
     Dosage: PO
     Route: 048
  2. ZESTRIL [Concomitant]
  3. NIACIN [Concomitant]

REACTIONS (1)
  - BACK PAIN [None]
